FAERS Safety Report 13675949 (Version 1)
Quarter: 2017Q2

REPORT INFORMATION
  Report Type: Spontaneous
  Country: US (occurrence: US)
  Receive Date: 20170620
  Receipt Date: 20170620
  Transmission Date: 20170830
  Serious: No
  Sender: FDA-Public Use
  Company Number: None

PATIENT
  Age: 88 Year
  Sex: Female
  Weight: 65.25 kg

DRUGS (7)
  1. AMITRIPTYLINE [Concomitant]
     Active Substance: AMITRIPTYLINE
  2. LORATADINE. [Concomitant]
     Active Substance: LORATADINE
  3. CENTRUM SILVER [Concomitant]
     Active Substance: MINERALS\VITAMINS
  4. AMLODOPINE BESYLATE [Concomitant]
     Active Substance: AMLODIPINE BESYLATE
  5. VITAMIN C [Concomitant]
     Active Substance: ASCORBIC ACID
  6. VISION SHIELD [Concomitant]
  7. KETOROLAC TROMETHAMINE OPHTH SOL [Suspect]
     Active Substance: KETOROLAC TROMETHAMINE
     Indication: MACULAR DEGENERATION
     Dosage: ?          QUANTITY:5 DROP(S);?
     Route: 047
     Dates: start: 20170619, end: 20170620

REACTIONS (1)
  - Hypoacusis [None]

NARRATIVE: CASE EVENT DATE: 20170619
